FAERS Safety Report 4865283-2 (Version None)
Quarter: 2005Q4

REPORT INFORMATION
  Report Type: 
  Country: None (occurrence: None)
  Receive Date: 20051221
  Receipt Date: 20051221
  Transmission Date: 20060501
  Serious: Yes (Life-Threatening)
  Sender: FDA-Public Use
  Company Number: None

PATIENT
  Sex: Male
  Weight: 64 kg

DRUGS (2)
  1. PROTAMINE 250 MG/ 25 ML APP [Suspect]
     Indication: HEPARIN NEUTRALISATION THERAPY
     Dates: start: 20051207, end: 20051208
  2. PROTAMINE 250 MG/ 25 ML APP [Suspect]

REACTIONS (4)
  - CARDIAC ARREST [None]
  - DILATATION VENTRICULAR [None]
  - PROCEDURAL COMPLICATION [None]
  - PULMONARY ARTERIAL PRESSURE INCREASED [None]
